FAERS Safety Report 9840353 (Version 2)
Quarter: 2014Q2

REPORT INFORMATION
  Report Type: Spontaneous
  Country: DE (occurrence: DE)
  Receive Date: 20140124
  Receipt Date: 20140519
  Transmission Date: 20141212
  Serious: Yes (Life-Threatening, Hospitalization, Other)
  Sender: FDA-Public Use
  Company Number: DE-JNJFOC-20140107235

PATIENT
  Age: 55 Year
  Sex: Male
  Weight: 65 kg

DRUGS (10)
  1. XEPLION [Suspect]
     Indication: SCHIZOPHRENIA, PARANOID TYPE
     Route: 030
  2. SPIRIVA [Concomitant]
     Indication: CHRONIC OBSTRUCTIVE PULMONARY DISEASE
     Route: 055
     Dates: start: 20130909, end: 20131202
  3. FORADIL [Concomitant]
     Indication: CHRONIC OBSTRUCTIVE PULMONARY DISEASE
     Route: 055
     Dates: start: 20131205
  4. SEREVENT (SALMETEROL XINAFOATE) [Concomitant]
     Route: 055
     Dates: start: 20131205
  5. DAXAS [Concomitant]
     Route: 048
     Dates: start: 20131217
  6. SYMBICORT [Concomitant]
     Route: 055
     Dates: start: 20130926, end: 20131008
  7. SALBUTAMOL [Concomitant]
     Route: 055
     Dates: start: 20130909, end: 20130920
  8. BEROTEC [Concomitant]
     Dosage: 6X 2 DOSES= 12 DOSES
     Route: 055
     Dates: start: 20130923
  9. PREDNISOLON [Concomitant]
     Route: 055
     Dates: start: 20131007, end: 20131029
  10. VIANI FORTE [Concomitant]
     Route: 055
     Dates: start: 20131008, end: 20131017

REACTIONS (2)
  - Chronic obstructive pulmonary disease [Recovered/Resolved with Sequelae]
  - Respiratory failure [Unknown]
